FAERS Safety Report 20475683 (Version 1)
Quarter: 2022Q1

REPORT INFORMATION
  Report Type: Spontaneous
  Country: US (occurrence: US)
  Receive Date: 20220215
  Receipt Date: 20220215
  Transmission Date: 20220423
  Serious: No
  Sender: FDA-Public Use
  Company Number: US-NOVARTISTESTPH-NVSC2022US033993

PATIENT
  Sex: Male
  Weight: 136.2 kg

DRUGS (4)
  1. XOLAIR [Suspect]
     Active Substance: OMALIZUMAB
     Indication: Chronic spontaneous urticaria
     Dosage: 300 MG, Q4W,(TAKES TWO 150MG, EVERY 4 WEEKS )
     Route: 058
     Dates: start: 2014
  2. XOLAIR [Suspect]
     Active Substance: OMALIZUMAB
     Dosage: 300 MG, Q4W,(TAKES TWO 150MG, EVERY 4 WEEKS)
     Route: 058
     Dates: start: 20220112
  3. MYCOPHENOLATE MOFETIL [Suspect]
     Active Substance: MYCOPHENOLATE MOFETIL
     Indication: Chronic spontaneous urticaria
     Route: 065
  4. VITAMIN D NATURE^S WAY [Concomitant]
     Indication: Product used for unknown indication
     Route: 065

REACTIONS (11)
  - Osteopenia [Not Recovered/Not Resolved]
  - Malaise [Unknown]
  - Myalgia [Recovered/Resolved]
  - Nasal congestion [Recovered/Resolved]
  - Irritability [Recovered/Resolved]
  - Rhinorrhoea [Not Recovered/Not Resolved]
  - Insomnia [Unknown]
  - Vision blurred [Not Recovered/Not Resolved]
  - Headache [Unknown]
  - Pruritus [Unknown]
  - Off label use [Unknown]
